FAERS Safety Report 12851772 (Version 1)
Quarter: 2016Q4

REPORT INFORMATION
  Report Type: Spontaneous
  Country: US (occurrence: US)
  Receive Date: 20161017
  Receipt Date: 20161017
  Transmission Date: 20170207
  Serious: No
  Sender: FDA-Public Use
  Company Number: US-JNJFOC-20160912903

PATIENT
  Sex: Female
  Weight: 63 kg

DRUGS (13)
  1. IMBRUVICA [Suspect]
     Active Substance: IBRUTINIB
     Indication: PRODUCT USED FOR UNKNOWN INDICATION
     Route: 048
     Dates: start: 20160413, end: 20160510
  2. ACYCLOVIR. [Concomitant]
     Active Substance: ACYCLOVIR
  3. PREDNISONE. [Concomitant]
     Active Substance: PREDNISONE
  4. TACROLIMUS. [Concomitant]
     Active Substance: TACROLIMUS
  5. BACTRIM [Concomitant]
     Active Substance: SULFAMETHOXAZOLE\TRIMETHOPRIM
  6. FAMOTIDINE. [Concomitant]
     Active Substance: FAMOTIDINE
  7. GLEEVEC [Concomitant]
     Active Substance: IMATINIB MESYLATE
  8. GABAPENTIN. [Concomitant]
     Active Substance: GABAPENTIN
  9. LEVOTHYROXINE SODIUM. [Concomitant]
     Active Substance: LEVOTHYROXINE SODIUM
  10. WELLBUTRIN [Concomitant]
     Active Substance: BUPROPION HYDROCHLORIDE
  11. BENZYLPENICILLIN POTASSIUM [Concomitant]
     Active Substance: PENICILLIN G POTASSIUM
  12. ALLOPURINOL. [Concomitant]
     Active Substance: ALLOPURINOL
  13. SEROQUEL [Concomitant]
     Active Substance: QUETIAPINE FUMARATE

REACTIONS (1)
  - Alopecia [Not Recovered/Not Resolved]
